FAERS Safety Report 6068671-4 (Version None)
Quarter: 2009Q1

REPORT INFORMATION
  Report Type: 
  Country: None (occurrence: None)
  Receive Date: 20090206
  Receipt Date: 20090202
  Transmission Date: 20090719
  Serious: Yes (Other)
  Sender: FDA-Public Use
  Company Number: B0376981A

PATIENT
  Sex: Male

DRUGS (8)
  1. PAROXETINE HCL [Suspect]
     Dates: start: 19990801
  2. DIAZEPAM [Concomitant]
     Dates: start: 19970324
  3. LORATADINE [Concomitant]
     Indication: ECZEMA
  4. ZOPICLONE [Concomitant]
  5. CETIRIZINE [Concomitant]
  6. DESLORATADINE [Concomitant]
     Dosage: 5MG PER DAY
  7. THIORIDAZINE HCL [Concomitant]
  8. AMOXICILLIN [Concomitant]
     Indication: URINARY TRACT INFECTION

REACTIONS (18)
  - AGITATION [None]
  - BALANCE DISORDER [None]
  - CONDITION AGGRAVATED [None]
  - CONFUSIONAL STATE [None]
  - CRYING [None]
  - DIARRHOEA [None]
  - DRUG WITHDRAWAL SYNDROME [None]
  - FATIGUE [None]
  - INITIAL INSOMNIA [None]
  - INJURY [None]
  - INSOMNIA [None]
  - LETHARGY [None]
  - MALAISE [None]
  - PARAESTHESIA [None]
  - POOR QUALITY SLEEP [None]
  - SUICIDAL IDEATION [None]
  - TREMOR [None]
  - VOMITING [None]
